FAERS Safety Report 10283077 (Version 4)
Quarter: 2014Q3

REPORT INFORMATION
  Report Type: Spontaneous
  Country: CA (occurrence: CA)
  Receive Date: 20140708
  Receipt Date: 20140910
  Transmission Date: 20150326
  Serious: Yes (Other)
  Sender: FDA-Public Use
  Company Number: CA-AMGEN-CANSP2014047418

PATIENT
  Age: 72 Year
  Sex: Female
  Weight: 57.5 kg

DRUGS (1)
  1. PROLIA [Suspect]
     Active Substance: DENOSUMAB
     Indication: OSTEOPOROSIS POSTMENOPAUSAL
     Dosage: 60 MG, Q6MO
     Route: 058
     Dates: start: 201402

REACTIONS (11)
  - Toothache [Not Recovered/Not Resolved]
  - Infection [Unknown]
  - Tooth infection [Not Recovered/Not Resolved]
  - Facial pain [Unknown]
  - Gait disturbance [Unknown]
  - Gingivitis [Recovered/Resolved]
  - Cyst rupture [Unknown]
  - Gingival cyst [Unknown]
  - Mobility decreased [Unknown]
  - Infected dermal cyst [Recovered/Resolved]
  - Pollakiuria [Unknown]

NARRATIVE: CASE EVENT DATE: 201405
